FAERS Safety Report 7786434-6 (Version None)
Quarter: 2011Q3

REPORT INFORMATION
  Report Type: 
  Country: None (occurrence: None)
  Receive Date: 20110928
  Receipt Date: 20110928
  Transmission Date: 20111222
  Serious: No
  Sender: FDA-Public Use
  Company Number: None

PATIENT
  Age: 81 Year
  Sex: Female
  Weight: 63.5036 kg

DRUGS (2)
  1. ADVAIR DISKUS 250/50 [Suspect]
     Indication: DYSPNOEA
     Dosage: 250 MCG 2/DAY INHALATION
     Route: 055
     Dates: start: 20101115
  2. ADVAIR DISKUS 250/50 [Suspect]
     Indication: DYSPNOEA
     Dosage: 250 MCG 2/DAY INHALATION
     Route: 055
     Dates: start: 20110415

REACTIONS (2)
  - NAUSEA [None]
  - VOMITING [None]
